FAERS Safety Report 12891727 (Version 2)
Quarter: 2016Q4

REPORT INFORMATION
  Report Type: Spontaneous
  Country: DE (occurrence: DE)
  Receive Date: 20161028
  Receipt Date: 20161028
  Transmission Date: 20170207
  Serious: Yes (Other)
  Sender: FDA-Public Use
  Company Number: DE-UCBSA-2016040376

PATIENT
  Age: 38 Year
  Sex: Female

DRUGS (14)
  1. UTROGEST [Concomitant]
     Active Substance: PROGESTERONE
     Indication: PROPHYLAXIS OF ABORTION
     Dosage: 200 MG, 2X/DAY (BID)
  2. IBUPROFEN. [Concomitant]
     Active Substance: IBUPROFEN
     Indication: PAIN
     Dosage: DOSES BETWEEN 400 MG/D TO 1200 MG/D
  3. QUENSYL [Concomitant]
     Active Substance: HYDROXYCHLOROQUINE
     Indication: RHEUMATOID ARTHRITIS
     Dosage: 200 MG, ONCE DAILY (QD)
     Dates: start: 20150610, end: 20160303
  4. VIGANTOLETTEN [Concomitant]
     Active Substance: CHOLECALCIFEROL
     Indication: VITAMIN D DEFICIENCY
     Dosage: 1000 IU, ONCE DAILY (QD)
     Dates: start: 20150610, end: 20160303
  5. VOMEX A [Concomitant]
     Active Substance: DIMENHYDRINATE
     Indication: NAUSEA
     Dosage: 150 MG/D FROM GW 6 TO 10
  6. ERYHEXAL [Concomitant]
     Active Substance: ERYTHROMYCIN
     Indication: BRONCHITIS
     Dosage: 500 MG, 3X/DAY (TID)
  7. PARACETAMOL [Concomitant]
     Active Substance: ACETAMINOPHEN
     Indication: PAIN
     Dosage: 1000 MG NOT KNOWN IF IT WAS TAKEN DAILY OR AS NEEDED
  8. CEFACLOR. [Concomitant]
     Active Substance: CEFACLOR
     Indication: BRONCHITIS
     Dosage: 500 MG, ONCE DAILY (QD)
  9. CIMZIA [Suspect]
     Active Substance: CERTOLIZUMAB PEGOL
     Indication: RHEUMATOID ARTHRITIS
     Dosage: 200 MG, 1 IN 9 DAYS
     Route: 058
     Dates: start: 20150610, end: 20160303
  10. PARACODIN [Concomitant]
     Active Substance: DIHYDROCODEINE BITARTRATE
     Indication: COUGH
     Dosage: 10 MG, ONCE DAILY (QD)
     Dates: start: 20151123, end: 20151123
  11. CLEXANE [Concomitant]
     Active Substance: ENOXAPARIN SODIUM
     Indication: THROMBOSIS PROPHYLAXIS
     Dosage: 40 MG, ONCE DAILY (QD)
     Dates: start: 20150710
  12. DECORTIN [Concomitant]
     Active Substance: PREDNISONE
     Indication: RHEUMATOID ARTHRITIS
     Dosage: TAKEN IN DIFFERENT DOSES 7.5 MG/ DAY TO 15 MG/DAY
     Dates: start: 20150610, end: 20160303
  13. NAUSEMA [Concomitant]
     Indication: NAUSEA
     Dosage: FROM GW 6 TO 12
  14. IBEROGAST [Concomitant]
     Active Substance: HERBALS
     Indication: NAUSEA
     Dosage: UNK

REACTIONS (3)
  - Cough [Recovered/Resolved]
  - Bronchitis [Recovered/Resolved]
  - Exposure during pregnancy [Unknown]

NARRATIVE: CASE EVENT DATE: 20150610
